FAERS Safety Report 9924788 (Version 1)
Quarter: 2014Q1

REPORT INFORMATION
  Report Type: Spontaneous
  Country: US (occurrence: US)
  Receive Date: 20140226
  Receipt Date: 20140226
  Transmission Date: 20141002
  Serious: Yes (Other)
  Sender: FDA-Public Use
  Company Number: US-RB-063265-14

PATIENT
  Age: 29 Year
  Sex: Male

DRUGS (1)
  1. CLEARASIL ULTRA RAPID ACTION DAILY FACE WASH [Suspect]
     Indication: PRODUCT USED FOR UNKNOWN INDICATION
     Dosage: APPLIED ON FACE LAST NIGHT ON 17-FEB-2014.
     Route: 061
     Dates: start: 20140217

REACTIONS (6)
  - Dyskinesia [Not Recovered/Not Resolved]
  - Swelling face [Not Recovered/Not Resolved]
  - Eye swelling [Not Recovered/Not Resolved]
  - Erythema [Not Recovered/Not Resolved]
  - Hot flush [Not Recovered/Not Resolved]
  - Hyperaesthesia [Not Recovered/Not Resolved]
